FAERS Safety Report 14249955 (Version 1)
Quarter: 2017Q4

REPORT INFORMATION
  Report Type: Spontaneous
  Country: US (occurrence: US)
  Receive Date: 20171205
  Receipt Date: 20171205
  Transmission Date: 20180321
  Serious: Yes (Other)
  Sender: FDA-Public Use
  Company Number: US-TEVA-2017-US-830593

PATIENT
  Age: 70 Year
  Sex: Female

DRUGS (2)
  1. IMPAX (PROPRANOLOL) [Suspect]
     Active Substance: PROPRANOLOL HYDROCHLORIDE
     Dates: start: 20170522
  2. CLONIDINE. [Suspect]
     Active Substance: CLONIDINE

REACTIONS (5)
  - Head discomfort [Unknown]
  - Tinnitus [Unknown]
  - Drug ineffective [Unknown]
  - Abdominal pain [Unknown]
  - Abdominal distension [Unknown]
